FAERS Safety Report 8010821-4 (Version None)
Quarter: 2011Q4

REPORT INFORMATION
  Report Type: 
  Country: None (occurrence: None)
  Receive Date: 20111228
  Receipt Date: 20111222
  Transmission Date: 20120403
  Serious: Yes (Hospitalization)
  Sender: FDA-Public Use
  Company Number: FR-B.I. PHARMACEUTICALS,INC./RIDGEFIELD-2011-FF-01213FF

PATIENT
  Sex: Female
  Weight: 73 kg

DRUGS (5)
  1. VIRAMUNE [Suspect]
     Indication: HIV INFECTION
     Dosage: 400 MG
     Route: 048
     Dates: start: 20111024, end: 20111128
  2. CEFPODOXIME PROXETIL [Suspect]
     Indication: OROPHARYNGEAL PAIN
     Route: 048
     Dates: start: 20111118, end: 20111124
  3. TRUVADA [Concomitant]
     Indication: HIV INFECTION
     Dosage: 200MG/245MG
     Route: 048
     Dates: start: 20111024
  4. ACETAMINOPHEN [Suspect]
     Indication: HEADACHE
     Dosage: 2 G
     Route: 048
     Dates: start: 20111118, end: 20111124
  5. PNEUMOCOCCAL VACCINE [Concomitant]
     Dates: start: 20091212

REACTIONS (4)
  - HEPATOCELLULAR INJURY [None]
  - PRURITUS [None]
  - HEADACHE [None]
  - OROPHARYNGEAL PAIN [None]
